FAERS Safety Report 6858884-3 (Version None)
Quarter: 2010Q3

REPORT INFORMATION
  Report Type: 
  Country: None (occurrence: None)
  Receive Date: 20100719
  Receipt Date: 20080214
  Transmission Date: 20110219
  Serious: No
  Sender: FDA-Public Use
  Company Number: US-PFIZER INC-2008016691

PATIENT
  Sex: Female
  Weight: 52.3 kg

DRUGS (4)
  1. CHANTIX [Suspect]
     Indication: SMOKING CESSATION THERAPY
     Dates: start: 20071201
  2. ERYTHROMYCIN [Concomitant]
  3. PREMARIN [Concomitant]
  4. PROZAC [Concomitant]

REACTIONS (2)
  - NAUSEA [None]
  - SKIN DISORDER [None]
